FAERS Safety Report 5501343-0 (Version None)
Quarter: 2007Q4

REPORT INFORMATION
  Report Type: 
  Country: None (occurrence: None)
  Receive Date: 20071026
  Receipt Date: 20071016
  Transmission Date: 20080405
  Serious: Yes (Hospitalization)
  Sender: FDA-Public Use
  Company Number: 20073960

PATIENT
  Sex: Male

DRUGS (6)
  1. LIORESAL [Suspect]
     Indication: MUSCLE SPASTICITY
     Dosage: 75-237.6 MCG, DAILY, INTRATHECAL
     Route: 037
     Dates: start: 20000101
  2. LEVAQUIN + LORTAB (POSTOPERATIVELY) [Concomitant]
  3. ORAL BACLOFEN [Concomitant]
  4. EFFEXOR XR [Concomitant]
  5. FLOMAX [Concomitant]
  6. DULCOLAX [Concomitant]

REACTIONS (13)
  - ASTHENIA [None]
  - COUGH [None]
  - DRUG INEFFECTIVE [None]
  - HYPERHIDROSIS [None]
  - HYPERTONIA [None]
  - HYPOTONIA [None]
  - INCORRECT DOSE ADMINISTERED [None]
  - MUSCLE SPASTICITY [None]
  - MUSCLE TWITCHING [None]
  - PARAESTHESIA [None]
  - SOMNOLENCE [None]
  - TACHYCARDIA [None]
  - URINARY RETENTION [None]
